FAERS Safety Report 6832096-1 (Version None)
Quarter: 2010Q3

REPORT INFORMATION
  Report Type: 
  Country: None (occurrence: None)
  Receive Date: 20100712
  Receipt Date: 20100630
  Transmission Date: 20110219
  Serious: Yes (Hospitalization)
  Sender: FDA-Public Use
  Company Number: ZA-ROCHE-714087

PATIENT
  Sex: Male
  Weight: 80.1 kg

DRUGS (3)
  1. BEVACIZUMAB [Suspect]
     Indication: RENAL CELL CARCINOMA
     Dosage: TEMPORARILY WITHELD.
     Route: 042
     Dates: start: 20100308
  2. TEMSIROLIMUS [Suspect]
     Indication: RENAL CELL CARCINOMA
     Dosage: TEMPORARILY WITHELD.
     Route: 042
     Dates: start: 20100308
  3. RIDAQ [Concomitant]
     Indication: HYPERTENSION
     Dates: start: 20100224

REACTIONS (1)
  - FACIAL PARESIS [None]
